FAERS Safety Report 21984425 (Version 1)
Quarter: 2023Q1

REPORT INFORMATION
  Report Type: Spontaneous
  Country: US (occurrence: US)
  Receive Date: 20230213
  Receipt Date: 20230213
  Transmission Date: 20230418
  Serious: Yes (Death, Other)
  Sender: FDA-Public Use
  Company Number: US-drreddys-LIT/USA/23/0161118

PATIENT
  Age: 49 Year

DRUGS (4)
  1. LORAZEPAM [Interacting]
     Active Substance: LORAZEPAM
     Indication: Product used for unknown indication
  2. NORDAZEPAM [Interacting]
     Active Substance: NORDAZEPAM
     Indication: Product used for unknown indication
  3. GABAPENTIN [Interacting]
     Active Substance: GABAPENTIN
     Indication: Product used for unknown indication
  4. SUBOXONE [Interacting]
     Active Substance: BUPRENORPHINE HYDROCHLORIDE\NALOXONE HYDROCHLORIDE
     Indication: Product used for unknown indication

REACTIONS (8)
  - Drug interaction [Fatal]
  - Toxicity to various agents [Fatal]
  - Nephrosclerosis [Unknown]
  - Hypertensive cardiomyopathy [Unknown]
  - Arteriosclerosis [Unknown]
  - Left ventricular hypertrophy [Unknown]
  - Pleural adhesion [Unknown]
  - Increased bronchial secretion [Unknown]
